FAERS Safety Report 7460096-X (Version None)
Quarter: 2011Q2

REPORT INFORMATION
  Report Type: 
  Country: None (occurrence: None)
  Receive Date: 20110505
  Receipt Date: 20110427
  Transmission Date: 20111010
  Serious: Yes (Hospitalization)
  Sender: FDA-Public Use
  Company Number: PHHO2011IT05477

PATIENT
  Sex: Male
  Weight: 60 kg

DRUGS (7)
  1. BLINDED NO TREATMENT RECEIVED [Suspect]
     Indication: CARDIAC FAILURE
     Dosage: CODE NOT BROKEN
     Route: 048
     Dates: start: 20100825, end: 20110325
  2. COMPARATOR ENALAPRIL [Suspect]
     Dosage: 10 MG, BID
     Route: 048
     Dates: start: 20100716, end: 20100729
  3. BLINDED ALISKIREN [Suspect]
     Indication: CARDIAC FAILURE
     Dosage: CODE NOT BROKEN
     Route: 048
     Dates: start: 20100825, end: 20110325
  4. WARFARIN [Suspect]
  5. BLINDED ENALAPRIL [Suspect]
     Indication: CARDIAC FAILURE
     Dosage: CODE NOT BROKEN
     Route: 048
     Dates: start: 20100825, end: 20110325
  6. ALISKIREN [Suspect]
     Indication: CARDIAC FAILURE
     Dosage: 150 MG, UNK
     Route: 048
     Dates: start: 20100702, end: 20100730
  7. COMPARATOR ENALAPRIL [Suspect]
     Indication: CARDIAC FAILURE
     Dosage: 5 MG, BID
     Route: 048
     Dates: start: 20100730, end: 20100825

REACTIONS (2)
  - CONCOMITANT DISEASE PROGRESSION [None]
  - ACUTE PULMONARY OEDEMA [None]
